FAERS Safety Report 5114129-6 (Version None)
Quarter: 2006Q3

REPORT INFORMATION
  Report Type: 
  Country: None (occurrence: None)
  Receive Date: 20060925
  Receipt Date: 20060502
  Transmission Date: 20061208
  Serious: Yes (Hospitalization)
  Sender: FDA-Public Use
  Company Number: FR-BAYER-200610414BFR

PATIENT
  Age: 0 Hour
  Sex: Male

DRUGS (5)
  1. ADALATE LP [Suspect]
     Indication: PREMATURE LABOUR
     Dosage: TOTAL DAILY DOSE: 60 MG  UNIT DOSE: 20 MG
     Route: 064
     Dates: end: 20060206
  2. CLAMOXYL [Suspect]
     Indication: STREPTOCOCCAL INFECTION
     Route: 064
     Dates: start: 20060203
  3. LOVENOX [Suspect]
     Indication: THROMBOSIS PROPHYLAXIS
     Route: 064
  4. TRACTOCILE [Suspect]
     Indication: PREMATURE LABOUR
     Route: 064
     Dates: start: 20060206, end: 20060208
  5. CELESTENE [Concomitant]
     Indication: LUNG DISORDER
     Route: 064
     Dates: start: 20060203, end: 20060204

REACTIONS (2)
  - HYPOXIA [None]
  - PULMONARY HYPERTENSION [None]
